FAERS Safety Report 4302063-0 (Version None)
Quarter: 2004Q1

REPORT INFORMATION
  Report Type: 
  Country: None (occurrence: None)
  Receive Date: 20040126
  Receipt Date: 20030827
  Transmission Date: 20041129
  Serious: No
  Sender: FDA-Public Use
  Company Number: US_030897284

PATIENT
  Age: 7 Year
  Sex: Female

DRUGS (5)
  1. STRATTERA [Suspect]
     Indication: ATTENTION DEFICIT/HYPERACTIVITY DISORDER
     Dosage: 40 MG/DAY
     Dates: start: 20030501
  2. ZYPREXA ZYDIS [Concomitant]
  3. RISPERDAL [Concomitant]
  4. LUVOX [Concomitant]
  5. ABILIFY [Concomitant]

REACTIONS (1)
  - DYSPHEMIA [None]
